FAERS Safety Report 9496885 (Version 1)
Quarter: 2013Q3

REPORT INFORMATION
  Report Type: Spontaneous
  Country: US (occurrence: None)
  Receive Date: 20130903
  Receipt Date: 20130903
  Transmission Date: 20140515
  Serious: Yes (Disabling)
  Sender: FDA-Public Use
  Company Number: None

PATIENT
  Age: 51 Year
  Sex: Female
  Weight: 98.43 kg

DRUGS (3)
  1. REQUIP [Suspect]
     Indication: RESTLESS LEGS SYNDROME
     Route: 048
     Dates: start: 20090917, end: 20130412
  2. REQUIP [Suspect]
     Indication: RESTLESS LEGS SYNDROME
     Route: 048
     Dates: start: 20090917, end: 20130412
  3. MIRAPEX [Suspect]
     Indication: RESTLESS LEGS SYNDROME
     Route: 048
     Dates: start: 20030311, end: 20130412

REACTIONS (7)
  - Eating disorder [None]
  - Drug effect decreased [None]
  - Weight increased [None]
  - Hypertension [None]
  - Blood cholesterol increased [None]
  - Gastrooesophageal reflux disease [None]
  - Sleep apnoea syndrome [None]
